FAERS Safety Report 9305081 (Version 1)
Quarter: 2013Q2

REPORT INFORMATION
  Report Type: Spontaneous
  Country: US (occurrence: US)
  Receive Date: 20130523
  Receipt Date: 20130523
  Transmission Date: 20140414
  Serious: Yes (Other)
  Sender: FDA-Public Use
  Company Number: US-JNJFOC-20130506417

PATIENT
  Age: 17 Year
  Sex: Male
  Weight: 108.86 kg

DRUGS (2)
  1. CONCERTA [Suspect]
     Indication: MIGRAINE
     Dosage: 36 MG TABLETS X 3 IN THE MORNING
     Route: 048
     Dates: start: 2003
  2. CONCERTA [Suspect]
     Indication: ATTENTION DEFICIT/HYPERACTIVITY DISORDER
     Dosage: 36 MG TABLETS X 3 IN THE MORNING
     Route: 048
     Dates: start: 2003

REACTIONS (7)
  - Mass [Not Recovered/Not Resolved]
  - Loss of consciousness [Not Recovered/Not Resolved]
  - Increased appetite [Not Recovered/Not Resolved]
  - Drug dose omission [Not Recovered/Not Resolved]
  - Attention deficit/hyperactivity disorder [Not Recovered/Not Resolved]
  - Migraine [Not Recovered/Not Resolved]
  - Overdose [Not Recovered/Not Resolved]
